FAERS Safety Report 6931932-8 (Version None)
Quarter: 2010Q3

REPORT INFORMATION
  Report Type: 
  Country: None (occurrence: None)
  Receive Date: 20100819
  Receipt Date: 20100810
  Transmission Date: 20110219
  Serious: Yes (Other)
  Sender: FDA-Public Use
  Company Number: JP-BRISTOL-MYERS SQUIBB COMPANY-15235195

PATIENT
  Age: 34 Month
  Sex: Male

DRUGS (2)
  1. ETOPOSIDE [Suspect]
     Indication: ACUTE MEGAKARYOCYTIC LEUKAEMIA
     Dosage: CUMULATIVE DOSE: 2,300 MG/M2
  2. CYTARABINE [Suspect]
     Indication: ACUTE MEGAKARYOCYTIC LEUKAEMIA
     Dosage: CUMULATIVE DOSE: 10.65 G/M2

REACTIONS (1)
  - ACUTE RESPIRATORY DISTRESS SYNDROME [None]
